FAERS Safety Report 18974158 (Version 5)
Quarter: 2021Q2

REPORT INFORMATION
  Report Type: Report from Study
  Country: US (occurrence: US)
  Receive Date: 20210305
  Receipt Date: 20210512
  Transmission Date: 20210717
  Serious: No
  Sender: FDA-Public Use
  Company Number: NVSC2021US043662

PATIENT
  Sex: Female

DRUGS (3)
  1. KISQALI [Suspect]
     Active Substance: RIBOCICLIB
     Route: 048
  2. KISQALI [Suspect]
     Active Substance: RIBOCICLIB
     Indication: PRODUCT USED FOR UNKNOWN INDICATION
     Dosage: UNK
     Route: 048
  3. KISQALI [Suspect]
     Active Substance: RIBOCICLIB
     Route: 048

REACTIONS (9)
  - Rash [Unknown]
  - Peripheral coldness [Unknown]
  - Hot flush [Unknown]
  - Vomiting [Unknown]
  - Dizziness [Unknown]
  - Malaise [Unknown]
  - Rash vesicular [Unknown]
  - Feeling abnormal [Unknown]
  - Nausea [Unknown]
